FAERS Safety Report 16103809 (Version 2)
Quarter: 2019Q3

REPORT INFORMATION
  Report Type: Spontaneous
  Country: DE (occurrence: DE)
  Receive Date: 20190322
  Receipt Date: 20190730
  Transmission Date: 20191004
  Serious: Yes (Life-Threatening, Hospitalization, Other)
  Sender: FDA-Public Use
  Company Number: DE-AUROBINDO-AUR-APL-2019-014206

PATIENT

DRUGS (51)
  1. VALSARTAN 1A PHARMA [Suspect]
     Active Substance: VALSARTAN
     Indication: HYPERTENSION
     Dosage: 80 MILLIGRAM
     Route: 065
     Dates: start: 20150108
  2. ALVALIN [Concomitant]
     Indication: PRODUCT USED FOR UNKNOWN INDICATION
     Dosage: UNK
     Route: 065
     Dates: start: 20140129
  3. BERODUAL N [Concomitant]
     Active Substance: FENOTEROL HYDROBROMIDE\IPRATROPIUM BROMIDE
     Indication: PRODUCT USED FOR UNKNOWN INDICATION
     Dosage: UNK, ML
     Route: 065
     Dates: start: 20140527
  4. NOVAMINSULFON [Concomitant]
     Active Substance: METAMIZOLE
     Indication: PRODUCT USED FOR UNKNOWN INDICATION
     Dosage: UNK
     Route: 065
     Dates: start: 20140403
  5. SERTRALIN BASICS [Concomitant]
     Dosage: 100 MILLIGRAM
     Route: 065
     Dates: start: 20140709
  6. ALVALIN [Concomitant]
     Dosage: UNK
     Route: 065
     Dates: start: 20140311
  7. ESOMEPRAZOL TAD [Concomitant]
     Active Substance: ESOMEPRAZOLE MAGNESIUM
     Dosage: UNK
     Route: 065
     Dates: start: 20140916
  8. INUVAIR [Concomitant]
     Active Substance: BECLOMETHASONE DIPROPIONATE\FORMOTEROL FUMARATE
     Dosage: UNK, (100/6UG)
     Route: 065
     Dates: start: 20140429
  9. INUVAIR [Concomitant]
     Active Substance: BECLOMETHASONE DIPROPIONATE\FORMOTEROL FUMARATE
     Dosage: UNK (100/6UG)
     Route: 065
     Dates: start: 20140627
  10. IBUFLAM [Concomitant]
     Indication: PRODUCT USED FOR UNKNOWN INDICATION
     Dosage: UNK
     Route: 065
  11. LYRICA [Concomitant]
     Active Substance: PREGABALIN
     Indication: PRODUCT USED FOR UNKNOWN INDICATION
     Dosage: UNK (150 MG STRENGTH)
     Route: 065
     Dates: start: 20140129
  12. LYRICA [Concomitant]
     Active Substance: PREGABALIN
     Dosage: UNK (150MG STRENGTH)
     Route: 065
     Dates: start: 20140929
  13. PROMETHAZINE [Concomitant]
     Active Substance: PROMETHAZINE HYDROCHLORIDE
     Indication: PRODUCT USED FOR UNKNOWN INDICATION
     Dosage: UNK
     Route: 065
     Dates: start: 20140206
  14. PROMETHAZINE [Concomitant]
     Active Substance: PROMETHAZINE HYDROCHLORIDE
     Dosage: UNK
     Route: 065
     Dates: start: 20140708
  15. SERTRALIN BASICS [Concomitant]
     Indication: PRODUCT USED FOR UNKNOWN INDICATION
     Dosage: 50 MILLIGRAM
     Route: 065
     Dates: start: 20140513
  16. VALSARTAN DURA [Concomitant]
     Active Substance: VALSARTAN
     Dosage: 40 MILLIGRAM
     Route: 065
     Dates: start: 20140709
  17. ALPRAZOLAM. [Concomitant]
     Active Substance: ALPRAZOLAM
     Indication: PRODUCT USED FOR UNKNOWN INDICATION
     Dosage: UNK
     Route: 065
     Dates: start: 20140627
  18. ESOMEPRAZOL TAD [Concomitant]
     Active Substance: ESOMEPRAZOLE MAGNESIUM
     Indication: PRODUCT USED FOR UNKNOWN INDICATION
     Dosage: UNK
     Route: 065
     Dates: start: 20140403
  19. LYRICA [Concomitant]
     Active Substance: PREGABALIN
     Dosage: UNK (150MG STRENGTH)
     Route: 065
     Dates: start: 20140819
  20. SERTRALIN BASICS [Concomitant]
     Dosage: 100 MILLIGRAM
     Route: 065
     Dates: start: 20140513
  21. VALDOXAN [Concomitant]
     Active Substance: AGOMELATINE
     Dosage: UNK
     Route: 065
     Dates: start: 20140513
  22. VALSACOR [Concomitant]
     Active Substance: VALSARTAN
     Indication: PRODUCT USED FOR UNKNOWN INDICATION
     Dosage: UNK (80/125MG)
     Route: 016
     Dates: start: 20141017
  23. VALSARTAN+HCT ACTAVIS [Suspect]
     Active Substance: HYDROCHLOROTHIAZIDE\VALSARTAN
     Indication: PRODUCT USED FOR UNKNOWN INDICATION
     Dosage: UNK, MG
     Route: 065
     Dates: start: 20140617
  24. CIATYL-Z [Concomitant]
     Active Substance: ZUCLOPENTHIXOL
     Indication: PRODUCT USED FOR UNKNOWN INDICATION
     Dosage: UNK
     Route: 065
     Dates: start: 20140226
  25. ESOMEPRAZOL TAD [Concomitant]
     Active Substance: ESOMEPRAZOLE MAGNESIUM
     Dosage: UNK
     Route: 065
     Dates: start: 20140617
  26. INUVAIR [Concomitant]
     Active Substance: BECLOMETHASONE DIPROPIONATE\FORMOTEROL FUMARATE
     Dosage: UNK (100/6UG)
     Route: 065
     Dates: start: 20141105
  27. VALDOXAN [Concomitant]
     Active Substance: AGOMELATINE
     Indication: PRODUCT USED FOR UNKNOWN INDICATION
     Dosage: UNK
     Route: 065
     Dates: start: 20140206
  28. INUVAIR [Concomitant]
     Active Substance: BECLOMETHASONE DIPROPIONATE\FORMOTEROL FUMARATE
     Indication: PRODUCT USED FOR UNKNOWN INDICATION
     Dosage: UNK (100/6UG)
     Route: 065
     Dates: start: 20140206
  29. LYRICA [Concomitant]
     Active Substance: PREGABALIN
     Dosage: UNK (150MG STRENGTH)
     Route: 065
     Dates: start: 20140320
  30. VALSARTAN ACTAVIS [Concomitant]
     Active Substance: VALSARTAN
     Indication: PRODUCT USED FOR UNKNOWN INDICATION
     Dosage: UNK
     Route: 016
     Dates: start: 20140617
  31. VALSARTAN ACTAVIS [Concomitant]
     Active Substance: VALSARTAN
     Dosage: UNK
     Route: 065
     Dates: start: 20140709
  32. VALSACOR [Concomitant]
     Active Substance: VALSARTAN
     Dosage: UNK (80/125MG)
     Route: 065
     Dates: start: 20141215
  33. VALSARTAN 1A PHARMA [Suspect]
     Active Substance: VALSARTAN
     Dosage: 160 MILLIGRAM, ONCE A DAY, 80 MG, BID
     Route: 048
     Dates: start: 20140916, end: 20150108
  34. ALPRAZOLAM. [Concomitant]
     Active Substance: ALPRAZOLAM
     Dosage: UNK
     Route: 065
     Dates: start: 20141114
  35. INUVAIR [Concomitant]
     Active Substance: BECLOMETHASONE DIPROPIONATE\FORMOTEROL FUMARATE
     Dosage: UNK (100/6UG)
     Route: 065
     Dates: start: 20140715
  36. LYRICA [Concomitant]
     Active Substance: PREGABALIN
     Dosage: 150 MILLIGRAM
     Route: 065
     Dates: start: 20141114
  37. LYRICA [Concomitant]
     Active Substance: PREGABALIN
     Indication: PRODUCT USED FOR UNKNOWN INDICATION
     Dosage: UNK, (STRENGTH:300 MG)
     Route: 065
     Dates: start: 20140206
  38. MCP [Concomitant]
     Active Substance: METOCLOPRAMIDE HYDROCHLORIDE
     Indication: PRODUCT USED FOR UNKNOWN INDICATION
     Dosage: UNK
     Route: 065
     Dates: start: 20141017
  39. PROMETHAZINE [Concomitant]
     Active Substance: PROMETHAZINE HYDROCHLORIDE
     Dosage: UNK
     Route: 065
     Dates: start: 20141222
  40. VALSARTAN DURA [Concomitant]
     Active Substance: VALSARTAN
     Dosage: 40 MILLIGRAM
     Route: 065
     Dates: start: 20140527
  41. VALSARTAN DURA [Concomitant]
     Active Substance: VALSARTAN
     Dosage: 40 MILLIGRAM
     Route: 065
     Dates: start: 20140616
  42. VALSARTAN DURA [Concomitant]
     Active Substance: VALSARTAN
     Dosage: 80 MILLIGRAM
     Route: 065
     Dates: start: 20141120
  43. LYRICA [Concomitant]
     Active Substance: PREGABALIN
     Dosage: UNK (150MG STRENGTH)
     Route: 065
     Dates: start: 20140513
  44. SERTRALIN BASICS [Concomitant]
     Dosage: 100 MILLIGRAM
     Route: 065
     Dates: start: 20140819
  45. VALSARTAN DURA [Concomitant]
     Active Substance: VALSARTAN
     Indication: PRODUCT USED FOR UNKNOWN INDICATION
     Dosage: 40 MILLIGRAM
     Route: 065
     Dates: start: 20140429
  46. VALSARTAN DURA [Concomitant]
     Active Substance: VALSARTAN
     Dosage: 40 MILLIGRAM
     Route: 065
     Dates: start: 20140929
  47. ESOMEPRAZOL TAD [Concomitant]
     Active Substance: ESOMEPRAZOLE MAGNESIUM
     Dosage: UNK
     Route: 065
     Dates: start: 20141215
  48. FINALGON [Concomitant]
     Indication: PRODUCT USED FOR UNKNOWN INDICATION
     Dosage: UNK
     Route: 065
     Dates: start: 20140129
  49. LYRICA [Concomitant]
     Active Substance: PREGABALIN
     Dosage: UNK (150MG STRENGTH)
     Route: 065
     Dates: start: 20140708
  50. OPIPRAMOL-NEURAXPHARM [Concomitant]
     Active Substance: OPIPRAMOL
     Indication: PRODUCT USED FOR UNKNOWN INDICATION
     Dosage: UNK
     Route: 065
     Dates: start: 20140129
  51. SERTRALIN BASICS [Concomitant]
     Dosage: 100 MILLIGRAM
     Route: 065
     Dates: start: 20141114

REACTIONS (6)
  - Breast cancer [Unknown]
  - Breast oedema [Unknown]
  - Scoliosis [Unknown]
  - Impaired healing [Recovered/Resolved]
  - Osteoarthritis [Unknown]
  - Ovarian cyst [Unknown]

NARRATIVE: CASE EVENT DATE: 20170119
